FAERS Safety Report 9679163 (Version 5)
Quarter: 2014Q2

REPORT INFORMATION
  Report Type: Spontaneous
  Country: US (occurrence: US)
  Receive Date: 20131108
  Receipt Date: 20140625
  Transmission Date: 20141212
  Serious: Yes (Hospitalization, Other)
  Sender: FDA-Public Use
  Company Number: US-BAXTER-2013BAX043683

PATIENT
  Sex: Male

DRUGS (1)
  1. DIANEAL LOW CALCIUM [Suspect]
     Indication: RENAL FAILURE CHRONIC
     Route: 033
     Dates: start: 20110903

REACTIONS (4)
  - Lung infection [Recovering/Resolving]
  - Asthma [Recovering/Resolving]
  - Acute respiratory failure [Recovering/Resolving]
  - Pyrexia [Unknown]
